FAERS Safety Report 25177612 (Version 1)
Quarter: 2025Q2

REPORT INFORMATION
  Report Type: Spontaneous
  Country: US (occurrence: US)
  Receive Date: 20250409
  Receipt Date: 20250409
  Transmission Date: 20250717
  Serious: Yes (Hospitalization, Other)
  Sender: LEO PHARM
  Company Number: US-LEO Pharma-378930

PATIENT
  Age: 73 Year
  Sex: Male

DRUGS (1)
  1. ADBRY [Suspect]
     Active Substance: TRALOKINUMAB-LDRM
     Indication: Pemphigoid
     Route: 058
     Dates: start: 20241115

REACTIONS (2)
  - Product use in unapproved indication [Unknown]
  - Gastrointestinal haemorrhage [Unknown]
